FAERS Safety Report 18930954 (Version 1)
Quarter: 2021Q1

REPORT INFORMATION
  Report Type: Spontaneous
  Country: ES (occurrence: GB)
  Receive Date: 20210223
  Receipt Date: 20210223
  Transmission Date: 20210420
  Serious: No
  Sender: FDA-Public Use
  Company Number: GB-BRECKENRIDGE PHARMACEUTICAL, INC.-2107204

PATIENT
  Age: 60 Year
  Sex: Female
  Weight: 66 kg

DRUGS (3)
  1. OMEPRAZOLE. [Suspect]
     Active Substance: OMEPRAZOLE
  2. CARBOCISTEINE (CARBOCISTEINE) [Concomitant]
     Active Substance: CARBOCYSTEINE
  3. SERETIDE (SALMETEROL; FLUTICASONE PROPIONATE MICRONISED; SALMETEROL XI [Concomitant]

REACTIONS (3)
  - Intraductal papillary mucinous neoplasm [None]
  - Medication error [None]
  - Hyperchlorhydria [None]
